FAERS Safety Report 8110269-8 (Version None)
Quarter: 2012Q1

REPORT INFORMATION
  Report Type: 
  Country: None (occurrence: None)
  Receive Date: 20120202
  Receipt Date: 20120130
  Transmission Date: 20120608
  Serious: No
  Sender: FDA-Public Use
  Company Number: US-PFIZER INC-2012026221

PATIENT
  Sex: Female

DRUGS (1)
  1. CORGARD [Suspect]
     Dosage: 80 MG, 4X/DAY

REACTIONS (1)
  - HEART RATE INCREASED [None]
